FAERS Safety Report 9889639 (Version 1)
Quarter: 2014Q1

REPORT INFORMATION
  Report Type: Spontaneous
  Country: DE (occurrence: DE)
  Receive Date: 20140211
  Receipt Date: 20140211
  Transmission Date: 20141002
  Serious: Yes (Other)
  Sender: FDA-Public Use
  Company Number: DE-MYLANLABS-2014S1002252

PATIENT
  Age: 44 Year
  Sex: Female
  Weight: 70 kg

DRUGS (4)
  1. MIRTAZAPIN [Suspect]
     Indication: DEPRESSION
     Dates: start: 20130703, end: 20130812
  2. MIRTAZAPIN [Suspect]
     Indication: DEPRESSION
     Dates: start: 20130812, end: 20130819
  3. ATOSIL [Concomitant]
     Indication: DEPRESSION
     Dosage: NACH BEDARF BIS 100 TRPF. / TAG
     Route: 048
     Dates: start: 20130703, end: 20130819
  4. TAVOR [Concomitant]
     Indication: DEPRESSION
     Dosage: NACH BEDARF BIS 3MG / TAG
     Route: 048
     Dates: start: 20130703, end: 20130819

REACTIONS (14)
  - Arrhythmia [Not Recovered/Not Resolved]
  - Arthralgia [Not Recovered/Not Resolved]
  - Blood pressure fluctuation [Not Recovered/Not Resolved]
  - Crying [Not Recovered/Not Resolved]
  - Derealisation [Not Recovered/Not Resolved]
  - Dizziness [Not Recovered/Not Resolved]
  - Dyspnoea [Not Recovered/Not Resolved]
  - Illusion [Not Recovered/Not Resolved]
  - Insomnia [Not Recovered/Not Resolved]
  - Nausea [Not Recovered/Not Resolved]
  - Panic attack [Not Recovered/Not Resolved]
  - Visual impairment [Not Recovered/Not Resolved]
  - Vomiting [Not Recovered/Not Resolved]
  - Histamine intolerance [Not Recovered/Not Resolved]
